FAERS Safety Report 7470024-9 (Version None)
Quarter: 2011Q2

REPORT INFORMATION
  Report Type: 
  Country: None (occurrence: None)
  Receive Date: 20110510
  Receipt Date: 20110506
  Transmission Date: 20111010
  Serious: Yes (Other)
  Sender: FDA-Public Use
  Company Number: AU-ROCHE-775774

PATIENT
  Age: 50 Year
  Sex: Male

DRUGS (2)
  1. IRINOTECAN HYDROCHLORIDE [Concomitant]
  2. AVASTIN [Suspect]
     Route: 065

REACTIONS (1)
  - TACHYCARDIA [None]
